FAERS Safety Report 6198645-4 (Version None)
Quarter: 2009Q2

REPORT INFORMATION
  Report Type: 
  Country: None (occurrence: None)
  Receive Date: 20090519
  Receipt Date: 20090519
  Transmission Date: 20091009
  Serious: Yes (Hospitalization)
  Sender: FDA-Public Use
  Company Number: None

PATIENT
  Age: 87 Year

DRUGS (1)
  1. TRIMETHOPRIM-SULFAMETHOXAZOLE [Suspect]
     Indication: INGROWING NAIL
     Dosage: 800/160 MG BID PO
     Route: 048
     Dates: start: 20080829, end: 20080908

REACTIONS (3)
  - BLOOD CREATININE INCREASED [None]
  - BLOOD UREA INCREASED [None]
  - HYPERKALAEMIA [None]
